FAERS Safety Report 6251994-3 (Version None)
Quarter: 2009Q2

REPORT INFORMATION
  Report Type: 
  Country: None (occurrence: None)
  Receive Date: 20090630
  Receipt Date: 20050101
  Transmission Date: 20091009
  Serious: Yes (Death, Hospitalization)
  Sender: FDA-Public Use
  Company Number: US-ROCHE-638342

PATIENT
  Sex: Male

DRUGS (16)
  1. ENFUVIRTIDE [Suspect]
     Route: 065
     Dates: start: 20040422, end: 20040426
  2. ENFUVIRTIDE [Suspect]
     Dosage: FREQUENCY: 3X WEEKLY.
     Route: 065
     Dates: start: 20040902, end: 20050101
  3. TRIZIVIR [Concomitant]
     Dates: start: 20011004, end: 20040928
  4. REYATAZ [Concomitant]
     Dosage: FREQUENCY: QD.
     Dates: start: 20021122, end: 20040928
  5. SUSTIVA [Concomitant]
     Dosage: FREQUENCY: QD.
     Dates: start: 20040928, end: 20050422
  6. TRUVADA [Concomitant]
     Dosage: FREQUENCY: QD.
     Dates: start: 20040928, end: 20050101
  7. LEXIVA [Concomitant]
     Dates: start: 20050422, end: 20050101
  8. ZERIT [Concomitant]
     Dates: start: 20050422, end: 20050101
  9. BACTRIM DS [Concomitant]
     Dosage: FREQUENCY: QD.
     Dates: start: 20040107, end: 20040901
  10. DIFLUCAN [Concomitant]
     Dosage: FREQUENCY: QD.
     Dates: start: 20040727, end: 20050101
  11. AUGMENTIN [Concomitant]
     Dates: start: 20040928, end: 20041005
  12. ZITHROMAX [Concomitant]
     Dosage: FREQUENCY: QD.
     Dates: start: 20040928, end: 20050101
  13. KETEK [Concomitant]
     Dosage: FREQUENCY: QD.
     Dates: start: 20041229, end: 20050101
  14. AMOXICILLIN [Concomitant]
     Dates: start: 20050101, end: 20050101
  15. BLEOMYCIN SULFATE [Concomitant]
     Dates: start: 20050101, end: 20050101
  16. VANCOMYCIN [Concomitant]
     Dates: start: 20050101, end: 20050101

REACTIONS (5)
  - BACTERIAL SEPSIS [None]
  - DISSEMINATED INTRAVASCULAR COAGULATION [None]
  - IMMUNODEFICIENCY [None]
  - LYMPHOMA [None]
  - SEPTIC SHOCK [None]
